FAERS Safety Report 15373659 (Version 1)
Quarter: 2018Q3

REPORT INFORMATION
  Report Type: Spontaneous
  Country: US (occurrence: US)
  Receive Date: 20180912
  Receipt Date: 20180912
  Transmission Date: 20181010
  Serious: No
  Sender: FDA-Public Use
  Company Number: US-PFIZER INC-2018365124

PATIENT
  Sex: Male

DRUGS (1)
  1. GABAPENTIN. [Suspect]
     Active Substance: GABAPENTIN
     Indication: DIABETIC NEUROPATHY
     Dosage: 800 MG, THRICE DAILY
     Route: 048
     Dates: end: 201806

REACTIONS (4)
  - Vision blurred [Recovering/Resolving]
  - Balance disorder [Recovered/Resolved]
  - Vertigo [Recovered/Resolved]
  - Product use in unapproved indication [Unknown]
